FAERS Safety Report 8427018-6 (Version None)
Quarter: 2012Q2

REPORT INFORMATION
  Report Type: 
  Country: None (occurrence: None)
  Receive Date: 20120611
  Receipt Date: 20120606
  Transmission Date: 20120825
  Serious: Yes (Disabling)
  Sender: FDA-Public Use
  Company Number: SI-ROCHE-1076057

PATIENT
  Age: 65 Year
  Sex: Female
  Weight: 70 kg

DRUGS (6)
  1. ALENDRONATE SODIUM [Concomitant]
  2. VITAMIN D [Concomitant]
  3. ACTEMRA [Suspect]
     Indication: RHEUMATOID ARTHRITIS
     Route: 042
     Dates: start: 20090309, end: 20110922
  4. NAKLOFEN DUO [Concomitant]
  5. PRAVASTATIN [Concomitant]
  6. ULTOP [Concomitant]

REACTIONS (1)
  - PROTEINURIA [None]
